FAERS Safety Report 26020658 (Version 1)
Quarter: 2025Q4

REPORT INFORMATION
  Report Type: Spontaneous
  Country: EU (occurrence: EU)
  Receive Date: 20251110
  Receipt Date: 20251110
  Transmission Date: 20260118
  Serious: Yes (Other)
  Sender: NOVO NORDISK
  Company Number: None

PATIENT
  Age: 44 Year
  Sex: Female

DRUGS (1)
  1. WEGOVY [Suspect]
     Active Substance: SEMAGLUTIDE
     Indication: Obesity
     Dosage: 0.25 MG GIVEN AT UNKNOWN DOSAGE INTERVAL
     Dates: start: 202306, end: 202308

REACTIONS (9)
  - Optic neuritis [Not Recovered/Not Resolved]
  - Ocular hyperaemia [Unknown]
  - Eye pain [Unknown]
  - Eye disorder [Not Recovered/Not Resolved]
  - Vision blurred [Recovering/Resolving]
  - Eye inflammation [Unknown]
  - Photophobia [Unknown]
  - Visual impairment [Recovering/Resolving]
  - Headache [Unknown]

NARRATIVE: CASE EVENT DATE: 20230701
